FAERS Safety Report 5834566-1 (Version None)
Quarter: 2008Q3

REPORT INFORMATION
  Report Type: 
  Country: None (occurrence: None)
  Receive Date: 20080801
  Receipt Date: 20080721
  Transmission Date: 20090109
  Serious: Yes (Disabling, Other)
  Sender: FDA-Public Use
  Company Number: FEI2007-0865

PATIENT
  Age: 2 Year
  Sex: Female
  Weight: 10.7412 kg

DRUGS (3)
  1. PARAGARD T 380A [Suspect]
  2. MULTIFITAMIN (VIGRAN) (UNKNOWN) [Concomitant]
  3. FISH OIL (FISH OIL) (UNKNOWN) [Concomitant]

REACTIONS (6)
  - ACOUSTIC STIMULATION TESTS ABNORMAL [None]
  - AUTISM [None]
  - CERUMEN IMPACTION [None]
  - DEVELOPMENTAL DELAY [None]
  - EAR INFECTION [None]
  - MATERNAL DRUGS AFFECTING FOETUS [None]
